FAERS Safety Report 6352988-X (Version None)
Quarter: 2009Q3

REPORT INFORMATION
  Report Type: 
  Country: None (occurrence: None)
  Receive Date: 20090912
  Receipt Date: 20090622
  Transmission Date: 20100115
  Serious: No
  Sender: FDA-Public Use
  Company Number: US-ABBOTT-08P-163-0451004-00

PATIENT
  Sex: Female
  Weight: 61.744 kg

DRUGS (10)
  1. HUMIRA [Suspect]
     Indication: RHEUMATOID ARTHRITIS
     Route: 058
     Dates: start: 20060201
  2. HUMIRA [Suspect]
     Dosage: PFS
     Route: 058
     Dates: start: 20040501, end: 20060201
  3. METHOTREXATE [Concomitant]
     Indication: RHEUMATOID ARTHRITIS
     Dosage: FOUR PILLS WEEKLY
     Route: 048
     Dates: start: 20040501
  4. CELECOXIB [Concomitant]
     Indication: RHEUMATOID ARTHRITIS
     Dosage: 1-2 PILLS DAILY
     Route: 048
     Dates: start: 20040501
  5. TRAMADOL HCL [Concomitant]
     Indication: PAIN
     Route: 048
     Dates: start: 20040501
  6. ALLEGRA D 24 HOUR [Concomitant]
     Indication: SEASONAL ALLERGY
     Dosage: DAILY EVERY 12 HOURS
     Route: 048
  7. ALLEGRA D 24 HOUR [Concomitant]
     Indication: SINUS CONGESTION
  8. ESOMEPRAZOLE MAGNESIUM [Concomitant]
     Indication: GASTROOESOPHAGEAL REFLUX DISEASE
     Route: 048
  9. PREDNISONE [Concomitant]
     Indication: PAIN IN EXTREMITY
     Dosage: DOSE PACK WITH TAPERING DOSE
     Route: 048
     Dates: start: 20080328, end: 20080402
  10. PREDNISONE [Concomitant]
     Dates: start: 20080506, end: 20080511

REACTIONS (7)
  - DRUG DELIVERY SYSTEM MALFUNCTION [None]
  - INCORRECT DOSE ADMINISTERED [None]
  - INFLUENZA [None]
  - INJECTION SITE PAIN [None]
  - PAIN IN EXTREMITY [None]
  - PNEUMONIA [None]
  - SINUSITIS [None]
